FAERS Safety Report 25145582 (Version 6)
Quarter: 2025Q4

REPORT INFORMATION
  Report Type: Spontaneous
  Country: US (occurrence: US)
  Receive Date: 20250401
  Receipt Date: 20251201
  Transmission Date: 20260117
  Serious: No
  Sender: SANOFI AVENTIS
  Company Number: US-SA-2025SA092582

PATIENT
  Age: 13 Year
  Sex: Female

DRUGS (4)
  1. DUPIXENT [Suspect]
     Active Substance: DUPILUMAB
     Indication: Dermatitis atopic
     Dosage: 400 MG, 1X
     Route: 058
     Dates: start: 2024, end: 2024
  2. DUPIXENT [Suspect]
     Active Substance: DUPILUMAB
     Dosage: 200 MG, QOW
     Route: 058
  3. TACROLIMUS [Concomitant]
     Active Substance: TACROLIMUS
  4. RINVOQ [Concomitant]
     Active Substance: UPADACITINIB

REACTIONS (16)
  - Peripheral coldness [Recovered/Resolved]
  - Rash macular [Unknown]
  - Eye pain [Recovered/Resolved]
  - Crepitations [Unknown]
  - Sensitive skin [Not Recovered/Not Resolved]
  - Feeling cold [Unknown]
  - Dry skin [Unknown]
  - Eye disorder [Unknown]
  - Eye pain [Unknown]
  - Back pain [Unknown]
  - Erythema [Unknown]
  - Injection site bruising [Recovered/Resolved]
  - Eczema [Unknown]
  - Rash [Unknown]
  - Inappropriate schedule of product administration [Unknown]
  - Incorrect dose administered [Unknown]

NARRATIVE: CASE EVENT DATE: 20240101
